FAERS Safety Report 9749268 (Version 1)
Quarter: 2013Q4

REPORT INFORMATION
  Report Type: Spontaneous
  Country: US (occurrence: US)
  Receive Date: 20131212
  Receipt Date: 20131212
  Transmission Date: 20140711
  Serious: No
  Sender: FDA-Public Use
  Company Number: US-TEVA-393905USA

PATIENT
  Age: 20 Year
  Sex: Female
  Weight: 60.38 kg

DRUGS (4)
  1. PARAGARD 380A [Suspect]
     Indication: CONTRACEPTION
     Route: 015
     Dates: start: 20130208, end: 20130320
  2. LEXAPRO [Concomitant]
     Indication: DEPRESSION
  3. ALLEGRA [Concomitant]
     Indication: HYPERSENSITIVITY
  4. NASONEX [Concomitant]
     Indication: HYPERSENSITIVITY

REACTIONS (2)
  - Metrorrhagia [Unknown]
  - Device expulsion [Recovered/Resolved]
